FAERS Safety Report 21785321 (Version 1)
Quarter: 2022Q4

REPORT INFORMATION
  Report Type: Spontaneous
  Country: US (occurrence: None)
  Receive Date: 20221223
  Receipt Date: 20221223
  Transmission Date: 20230112
  Serious: Yes (Hospitalization)
  Sender: FDA-Public Use
  Company Number: None

PATIENT
  Sex: Male

DRUGS (14)
  1. AMBRISENTAN [Suspect]
     Active Substance: AMBRISENTAN
     Indication: Pulmonary arterial hypertension
     Dosage: OTHER FREQUENCY : EVERY AM;?
     Route: 048
     Dates: start: 20190920
  2. AMBRISENTAN [Suspect]
     Active Substance: AMBRISENTAN
     Dosage: OTHER FREQUENCY : EVERY AM;?
  3. AMICAR [Concomitant]
     Active Substance: AMINOCAPROIC ACID
  4. AMINOCAPROIC SOL [Concomitant]
  5. CLONAZEPAM [Concomitant]
     Active Substance: CLONAZEPAM
  6. DIAZEPAM [Concomitant]
     Active Substance: DIAZEPAM
  7. FERROUS SULFATE [Concomitant]
     Active Substance: FERROUS SULFATE
  8. FYCOMPA SUS [Concomitant]
  9. A-HYDROCORT [Concomitant]
     Active Substance: HYDROCORTISONE SODIUM SUCCINATE
  10. LEVOTHROXIN [Concomitant]
  11. OLANZAPINE [Concomitant]
     Active Substance: OLANZAPINE
  12. TOPIRAMATE [Concomitant]
     Active Substance: TOPIRAMATE
  13. VIMPAT SOL [Concomitant]
  14. PYRIDOXINE [Concomitant]
     Active Substance: PYRIDOXINE

REACTIONS (1)
  - Hospitalisation [None]
